FAERS Safety Report 7426630-0 (Version None)
Quarter: 2011Q2

REPORT INFORMATION
  Report Type: 
  Country: None (occurrence: None)
  Receive Date: 20110413
  Receipt Date: 20110329
  Transmission Date: 20111010
  Serious: Yes (Other)
  Sender: FDA-Public Use
  Company Number: 023891

PATIENT
  Sex: Male
  Weight: 4.1 kg

DRUGS (5)
  1. FOLIC ACID [Concomitant]
  2. FLUZONE /00027001/ [Concomitant]
  3. PRENATAL VITAMINS /01549301/ [Concomitant]
  4. KEPPRA [Suspect]
     Indication: EPILEPSY
     Dosage: (1000 MG, PRIOR TO CONCEPTION TRANSPLACENTAL), (1500 MG TRANSPLACENTAL), (2000 MG TRANSPLACENTAL)
     Route: 064
     Dates: start: 20110105, end: 20110204
  5. KEPPRA [Suspect]
     Indication: EPILEPSY
     Dosage: (1000 MG, PRIOR TO CONCEPTION TRANSPLACENTAL), (1500 MG TRANSPLACENTAL), (2000 MG TRANSPLACENTAL)
     Route: 064
     Dates: start: 20101005

REACTIONS (2)
  - KIDNEY ENLARGEMENT [None]
  - MATERNAL DRUGS AFFECTING FOETUS [None]
